FAERS Safety Report 16186531 (Version 1)
Quarter: 2019Q2

REPORT INFORMATION
  Report Type: Spontaneous
  Country: FR (occurrence: FR)
  Receive Date: 20190411
  Receipt Date: 20190411
  Transmission Date: 20190711
  Serious: Yes (Death)
  Sender: FDA-Public Use
  Company Number: FR-MYLANLABS-2019M1033431

PATIENT
  Age: 60 Year
  Sex: Female
  Weight: 65 kg

DRUGS (11)
  1. IMIPENEMUM [Suspect]
     Active Substance: IMIPENEM
     Indication: INFECTION
     Dosage: 1500 MILLIGRAM, QD
     Route: 042
     Dates: start: 20180831, end: 20180905
  2. CILASTATINE [Suspect]
     Active Substance: CILASTATIN
     Indication: INFECTION
     Dosage: 1500 MILLIGRAM, QD
     Route: 042
     Dates: start: 20180831, end: 20180905
  3. FLUCONAZOLE. [Suspect]
     Active Substance: FLUCONAZOLE
     Indication: INFECTION
     Dosage: 400 MILLIGRAM, QD
     Route: 048
     Dates: start: 20180826, end: 20180902
  4. BISOPROLOL                         /00802602/ [Concomitant]
     Active Substance: BISOPROLOL
  5. PANTOPRAZOLE [Suspect]
     Active Substance: PANTOPRAZOLE
     Indication: PRODUCT USED FOR UNKNOWN INDICATION
     Dosage: 40 MILLIGRAM, QD
     Route: 048
     Dates: start: 20180818, end: 20180905
  6. HEPARINE SODIQUE [Suspect]
     Active Substance: HEPARIN SODIUM
     Indication: ATRIAL FIBRILLATION
     Dosage: 2200 INTERNATIONAL UNIT, QD
     Route: 042
     Dates: start: 20180818, end: 20180902
  7. LOVENOX [Suspect]
     Active Substance: ENOXAPARIN SODIUM
     Indication: ATRIAL FIBRILLATION
     Dosage: 1 DOSAGE FORM, QD, 4000 IU ANTI-XA / 0.4 ML
     Route: 058
     Dates: start: 20180729, end: 20180815
  8. AMIODARONE [Concomitant]
     Active Substance: AMIODARONE
     Dosage: UNK
  9. RAMIPRIL. [Concomitant]
     Active Substance: RAMIPRIL
  10. VENLAFAXINE [Suspect]
     Active Substance: VENLAFAXINE HYDROCHLORIDE
     Indication: ANXIETY
     Dosage: 37.5 MILLIGRAM, QD
     Route: 048
     Dates: start: 20180826, end: 20180905
  11. TRAMADOL. [Suspect]
     Active Substance: TRAMADOL
     Indication: PAIN
     Dosage: 200 MILLIGRAM, QD,FORME LP
     Route: 048
     Dates: start: 20180828, end: 20180905

REACTIONS (1)
  - Heparin-induced thrombocytopenia [Fatal]

NARRATIVE: CASE EVENT DATE: 20180902
